FAERS Safety Report 5721636-1 (Version None)
Quarter: 2008Q2

REPORT INFORMATION
  Report Type: 
  Country: None (occurrence: None)
  Receive Date: 20080429
  Receipt Date: 20070320
  Transmission Date: 20081010
  Serious: No
  Sender: FDA-Public Use
  Company Number: US-ASTRAZENECA-2007UW05528

PATIENT
  Age: 68 Year
  Sex: Female
  Weight: 80.7 kg

DRUGS (6)
  1. NEXIUM [Suspect]
     Indication: HIATUS HERNIA
     Route: 048
     Dates: start: 20070301
  2. NEXIUM [Suspect]
     Route: 048
  3. LIPITOR [Concomitant]
  4. VIVELLE [Concomitant]
  5. LIBRAX [Concomitant]
  6. ATENOLOL [Concomitant]

REACTIONS (3)
  - CONSTIPATION [None]
  - VAGINAL INFECTION [None]
  - VULVOVAGINAL DISCOMFORT [None]
